FAERS Safety Report 15730951 (Version 1)
Quarter: 2018Q4

REPORT INFORMATION
  Report Type: Spontaneous
  Country: GB (occurrence: GB)
  Receive Date: 20181217
  Receipt Date: 20181217
  Transmission Date: 20190205
  Serious: Yes (Other)
  Sender: FDA-Public Use
  Company Number: GB-ELI_LILLY_AND_COMPANY-15478605

PATIENT
  Age: 57 Year
  Sex: Female
  Weight: 84 kg

DRUGS (5)
  1. ERBITUX [Suspect]
     Active Substance: CETUXIMAB
     Indication: COLORECTAL CANCER
     Dosage: 250 MG/M2, WEEKLY (1/W)
     Route: 042
     Dates: start: 20101008, end: 20101224
  2. ERBITUX [Suspect]
     Active Substance: CETUXIMAB
     Dosage: 250 MG/M2, UNK
     Route: 042
     Dates: start: 20110107
  3. CAPECITABINE. [Suspect]
     Active Substance: CAPECITABINE
     Indication: COLORECTAL CANCER
     Dosage: 1000 MG/M2, EVERY 14 DAYS
     Route: 048
     Dates: end: 20101224
  4. CAPECITABINE. [Suspect]
     Active Substance: CAPECITABINE
     Dosage: 25% DOSE REDUCTION ON CAPECITABINE (750 MG/M2), EVERY 14 DAYS
     Route: 048
     Dates: start: 20110107
  5. OXALIPLATIN. [Suspect]
     Active Substance: OXALIPLATIN
     Indication: COLORECTAL CANCER
     Dosage: 97.5 MG/M2, EVERY 21 DAYS
     Route: 042
     Dates: end: 20101210

REACTIONS (2)
  - Platelet count decreased [Unknown]
  - Palmar-plantar erythrodysaesthesia syndrome [Recovered/Resolved]

NARRATIVE: CASE EVENT DATE: 20101230
